FAERS Safety Report 8277976-8 (Version None)
Quarter: 2012Q2

REPORT INFORMATION
  Report Type: 
  Country: None (occurrence: None)
  Receive Date: 20120412
  Receipt Date: 20120402
  Transmission Date: 20120825
  Serious: Yes (Other)
  Sender: FDA-Public Use
  Company Number: US-ELI_LILLY_AND_COMPANY-US201204001067

PATIENT
  Sex: Female

DRUGS (11)
  1. CRESTOR [Concomitant]
     Dosage: 40 MG, QD
  2. ALPRAZOLAM [Concomitant]
     Dosage: 5 MG, BID
  3. LASIX [Concomitant]
     Dosage: 40 MG, QD
  4. NEXIUM [Concomitant]
     Dosage: 40 MG, QD
  5. PREMARIN [Concomitant]
     Dosage: 1.25 DF, QD
  6. RAMIPRIL [Concomitant]
     Dosage: 5 MG, QD
  7. SYNTHROID [Concomitant]
     Dosage: 50 MG, QD
  8. KLOR-CON [Concomitant]
     Dosage: 20 MG, QD
  9. LEXAPRO [Concomitant]
     Dosage: 10 MG, BID
  10. ADCIRCA [Suspect]
     Indication: PULMONARY HYPERTENSION
     Dosage: 20 MG, BID
     Dates: start: 20120330
  11. TRIGLIDE [Concomitant]
     Dosage: 160 MG, QD

REACTIONS (8)
  - HEADACHE [None]
  - LOSS OF CONSCIOUSNESS [None]
  - FALL [None]
  - GAIT DISTURBANCE [None]
  - MALAISE [None]
  - JOINT INJURY [None]
  - FATIGUE [None]
  - ANAEMIA [None]
